FAERS Safety Report 4645006-2 (Version None)
Quarter: 2005Q2

REPORT INFORMATION
  Report Type: 
  Country: None (occurrence: None)
  Receive Date: 20050422
  Receipt Date: 20050410
  Transmission Date: 20051028
  Serious: Yes (Death)
  Sender: FDA-Public Use
  Company Number: 2005056462

PATIENT
  Age: 37 Year
  Sex: Female

DRUGS (1)
  1. SULPERAZON (SULBACTAM, CEFOPERAZONE) [Suspect]
     Indication: THERMAL BURN
     Dosage: 3 GRAM (1.5 GRAM , 2 IN 1D), INTRAVENOUS
     Route: 042
     Dates: start: 20050328, end: 20050402

REACTIONS (7)
  - BONE MARROW DEPRESSION [None]
  - DRUG INEFFECTIVE [None]
  - DRUG RESISTANCE [None]
  - PSEUDOMONAS INFECTION [None]
  - RENAL FAILURE ACUTE [None]
  - SEPTIC SHOCK [None]
  - WOUND INFECTION [None]
